FAERS Safety Report 20841808 (Version 2)
Quarter: 2022Q2

REPORT INFORMATION
  Report Type: Report from Study
  Country: GB (occurrence: GB)
  Receive Date: 20220518
  Receipt Date: 20220523
  Transmission Date: 20220720
  Serious: Yes (Other)
  Sender: FDA-Public Use
  Company Number: GB-NOVARTISPH-NVSC2019GB037245

PATIENT
  Age: 45 Year
  Sex: Male

DRUGS (4)
  1. COSENTYX [Suspect]
     Active Substance: SECUKINUMAB
     Indication: Ankylosing spondylitis
     Dosage: 150 MG, UNKNOWN
     Route: 065
     Dates: start: 20170825, end: 20170920
  2. COSENTYX [Suspect]
     Active Substance: SECUKINUMAB
     Dosage: 150 MG, UNKNOWN
     Route: 065
     Dates: start: 20170921, end: 20191011
  3. COSENTYX [Suspect]
     Active Substance: SECUKINUMAB
     Dosage: 150 MG, UNKNOWN
     Route: 065
     Dates: start: 20191212
  4. TRAMADOL [Concomitant]
     Active Substance: TRAMADOL
     Indication: Ankylosing spondylitis
     Dosage: 50 MG
     Route: 065
     Dates: start: 20140827

REACTIONS (3)
  - Pericarditis [Recovered/Resolved]
  - Anal abscess [Unknown]
  - Otorrhoea [Recovered/Resolved]

NARRATIVE: CASE EVENT DATE: 20190526
